FAERS Safety Report 9691779 (Version 1)
Quarter: 2013Q4

REPORT INFORMATION
  Report Type: Spontaneous
  Country: US (occurrence: US)
  Receive Date: 20131115
  Receipt Date: 20131115
  Transmission Date: 20140711
  Serious: Yes (Life-Threatening, Hospitalization, Other)
  Sender: FDA-Public Use
  Company Number: US-RB-060562-13

PATIENT
  Age: 57 Year
  Sex: Male

DRUGS (4)
  1. BUPRENORPHINE GENERIC [Suspect]
     Indication: DRUG DEPENDENCE
     Route: 060
     Dates: start: 2012
  2. BUPRENORPHINE GENERIC [Suspect]
     Dosage: DOSE TAPERED TO DOSE OF 4 MG THREE TIMES DAILY
     Route: 060
  3. COUMADIN [Suspect]
     Indication: ANTICOAGULANT THERAPY
     Route: 060
     Dates: start: 201303, end: 201307
  4. NICOTINE [Suspect]
     Indication: NICOTINE DEPENDENCE
     Dosage: THE PATIENT WAS SMOKING 3-4 PACKS PER DAY
     Route: 055
     Dates: end: 201302

REACTIONS (9)
  - Wrong technique in drug usage process [Not Recovered/Not Resolved]
  - Myocardial infarction [Recovered/Resolved]
  - Cerebrovascular accident [Recovered/Resolved]
  - Vomiting [Recovered/Resolved]
  - Diarrhoea [Recovered/Resolved]
  - Haematochezia [Recovered/Resolved]
  - Hemiparesis [Recovering/Resolving]
  - Drug withdrawal syndrome [Recovered/Resolved]
  - Rectal haemorrhage [Recovered/Resolved]
